FAERS Safety Report 15097711 (Version 2)
Quarter: 2018Q4

REPORT INFORMATION
  Report Type: Spontaneous
  Country: US (occurrence: US)
  Receive Date: 20180702
  Receipt Date: 20181010
  Transmission Date: 20190204
  Serious: Yes (Other)
  Sender: FDA-Public Use
  Company Number: US-GLAXOSMITHKLINE-US2018113751

PATIENT
  Age: 28 Year
  Sex: Female

DRUGS (1)
  1. SENSODYNE RAPID RELIEF [Suspect]
     Active Substance: STANNOUS FLUORIDE
     Indication: SENSITIVITY OF TEETH
     Dosage: UNK
     Dates: start: 20180619, end: 20180621

REACTIONS (7)
  - Gingival bleeding [Recovering/Resolving]
  - Corrosive oropharyngeal injury [Recovering/Resolving]
  - Gingival discomfort [Recovering/Resolving]
  - Mouth ulceration [Recovering/Resolving]
  - Oral discomfort [Recovering/Resolving]
  - Lip swelling [Recovering/Resolving]
  - Aphthous ulcer [Recovering/Resolving]

NARRATIVE: CASE EVENT DATE: 20180620
